FAERS Safety Report 7967929-9 (Version None)
Quarter: 2011Q4

REPORT INFORMATION
  Report Type: 
  Country: None (occurrence: None)
  Receive Date: 20111209
  Receipt Date: 20111130
  Transmission Date: 20120403
  Serious: Yes (Life-Threatening, Hospitalization)
  Sender: FDA-Public Use
  Company Number: GB-ROCHE-730404

PATIENT
  Sex: Male
  Weight: 78 kg

DRUGS (13)
  1. MYCOPHENOLATE MOFETIL (CELLCEPT) [Suspect]
     Route: 065
     Dates: start: 20100630, end: 20100922
  2. BISOPROLOL FUMARATE [Concomitant]
     Route: 048
  3. ACETAMINOPHEN [Concomitant]
     Route: 048
  4. MYCOPHENOLATE MOFETIL (CELLCEPT) [Suspect]
     Indication: ANTI-NEUTROPHIL CYTOPLASMIC ANTIBODY POSITIVE VASCULITIS
     Dosage: FREQUENCY: TDS
     Route: 065
  5. AZATHIOPRINE [Concomitant]
  6. VITAMIN B COMPLEX CAP [Concomitant]
     Route: 048
  7. AZATHIOPRINE [Concomitant]
  8. ARANESP [Concomitant]
     Route: 042
  9. LANSOPRAZOLE [Concomitant]
     Route: 048
  10. FOLIC ACID [Concomitant]
     Route: 048
  11. PREDNISOLONE [Concomitant]
     Route: 048
  12. BUMETANIDE [Concomitant]
     Route: 048
  13. ALENDRONATE SODIUM [Concomitant]
     Route: 048

REACTIONS (4)
  - PNEUMONIA [None]
  - LOWER RESPIRATORY TRACT INFECTION [None]
  - CARDIAC ARREST [None]
  - RENAL FAILURE CHRONIC [None]
